FAERS Safety Report 12720012 (Version 1)
Quarter: 2016Q3

REPORT INFORMATION
  Report Type: Spontaneous
  Country: US (occurrence: US)
  Receive Date: 20160907
  Receipt Date: 20160907
  Transmission Date: 20161109
  Serious: Yes (Other)
  Sender: FDA-Public Use
  Company Number: US-ROCHE-1826496

PATIENT
  Sex: Male

DRUGS (6)
  1. PULMOZYME [Suspect]
     Active Substance: DORNASE ALFA
     Indication: BRONCHIECTASIS
     Dosage: 1 AMP PER DAY
     Route: 065
  2. SYMBICORT [Concomitant]
     Active Substance: BUDESONIDE\FORMOTEROL FUMARATE DIHYDRATE
  3. CLARITIN (UNITED STATES) [Concomitant]
     Dosage: ROUTINE BASIS
     Route: 065
  4. ALLEGRA [Concomitant]
     Active Substance: FEXOFENADINE HYDROCHLORIDE
     Dosage: ROUTINE BASIS
     Route: 065
  5. SINGULAIR [Concomitant]
     Active Substance: MONTELUKAST SODIUM
     Route: 065
  6. DOXYCYCLINE. [Concomitant]
     Active Substance: DOXYCYCLINE
     Indication: BRONCHITIS

REACTIONS (4)
  - Rhinorrhoea [Not Recovered/Not Resolved]
  - Sinusitis [Not Recovered/Not Resolved]
  - Bronchitis [Not Recovered/Not Resolved]
  - Upper respiratory tract infection [Not Recovered/Not Resolved]
